FAERS Safety Report 7964272-9 (Version None)
Quarter: 2011Q4

REPORT INFORMATION
  Report Type: 
  Country: None (occurrence: None)
  Receive Date: 20111208
  Receipt Date: 20111130
  Transmission Date: 20120403
  Serious: Yes (Death, Hospitalization, Disabling)
  Sender: FDA-Public Use
  Company Number: US-SANOFI-AVENTIS-2011SA078647

PATIENT
  Sex: Female

DRUGS (2)
  1. PLAVIX [Suspect]
     Indication: THROMBOSIS
     Dates: start: 20080401, end: 20111006
  2. PLAVIX [Suspect]
     Indication: STENT PLACEMENT
     Dates: start: 20080401, end: 20111006

REACTIONS (9)
  - TREATMENT NONCOMPLIANCE [None]
  - CONFUSIONAL STATE [None]
  - DEATH [None]
  - GASTROINTESTINAL HAEMORRHAGE [None]
  - MENTAL STATUS CHANGES [None]
  - DECREASED APPETITE [None]
  - FAECES DISCOLOURED [None]
  - DEMENTIA ALZHEIMER'S TYPE [None]
  - DUODENAL ULCER PERFORATION [None]
